FAERS Safety Report 7207570-9 (Version None)
Quarter: 2011Q1

REPORT INFORMATION
  Report Type: 
  Country: None (occurrence: None)
  Receive Date: 20110103
  Receipt Date: 20101222
  Transmission Date: 20110831
  Serious: Yes (Hospitalization, Other)
  Sender: FDA-Public Use
  Company Number: US-ELI_LILLY_AND_COMPANY-US201005006807

PATIENT
  Sex: Female

DRUGS (3)
  1. FORTEO [Suspect]
     Indication: OSTEOPOROSIS
     Dosage: 20 UG, DAILY (1/D)
     Dates: start: 20100123
  2. LISINOPRIL [Concomitant]
     Dosage: 1 D/F, DAILY (1/D)
  3. MULTIVITAMIN [Concomitant]

REACTIONS (4)
  - CONTUSION [None]
  - HIP FRACTURE [None]
  - INJURY ASSOCIATED WITH DEVICE [None]
  - PRURITUS [None]
